FAERS Safety Report 19758087 (Version 1)
Quarter: 2021Q3

REPORT INFORMATION
  Report Type: Spontaneous
  Country: CA (occurrence: CA)
  Receive Date: 20210828
  Receipt Date: 20210828
  Transmission Date: 20211014
  Serious: Yes (Hospitalization, Other)
  Sender: FDA-Public Use
  Company Number: CA-AMGEN-CANSP2020012198

PATIENT

DRUGS (2)
  1. TRAMETINIB [Suspect]
     Active Substance: TRAMETINIB
     Indication: COLORECTAL CANCER METASTATIC
     Dosage: 1.5 MILLIGRAM, QD
     Route: 048
     Dates: start: 201511
  2. PANITUMUMAB [Suspect]
     Active Substance: PANITUMUMAB
     Indication: COLORECTAL CANCER METASTATIC
     Dosage: 4.8 MILLIGRAM/KILOGRAM, Q2WK
     Route: 042
     Dates: start: 201511

REACTIONS (16)
  - Stomatitis [Unknown]
  - Paronychia [Unknown]
  - Intestinal obstruction [Unknown]
  - Vomiting [Unknown]
  - Hypophosphataemia [Unknown]
  - Diarrhoea [Unknown]
  - Dry skin [Unknown]
  - Therapeutic product effect incomplete [Unknown]
  - Mucosal inflammation [Unknown]
  - Nausea [Unknown]
  - Toxicity to various agents [Unknown]
  - Pyrexia [Unknown]
  - Dermatitis acneiform [Unknown]
  - Colorectal cancer metastatic [Unknown]
  - Presyncope [Unknown]
  - Rash maculo-papular [Unknown]
